FAERS Safety Report 6160465-4 (Version None)
Quarter: 2009Q2

REPORT INFORMATION
  Report Type: 
  Country: None (occurrence: None)
  Receive Date: 20090420
  Receipt Date: 20090409
  Transmission Date: 20091009
  Serious: Yes (Other)
  Sender: FDA-Public Use
  Company Number: NL-JNJFOC-20090402642

PATIENT
  Sex: Female

DRUGS (3)
  1. GYNO DAKTARIN [Suspect]
     Route: 067
  2. GYNO DAKTARIN [Suspect]
     Indication: VULVOVAGINAL MYCOTIC INFECTION
     Route: 067
  3. AMOXICILLIN WITH CLAVULANIC ACID [Suspect]
     Indication: INFECTION
     Route: 065

REACTIONS (2)
  - SWELLING FACE [None]
  - SWOLLEN TONGUE [None]
